FAERS Safety Report 4844547-2 (Version None)
Quarter: 2005Q4

REPORT INFORMATION
  Report Type: 
  Country: None (occurrence: None)
  Receive Date: 20051129
  Receipt Date: 20051114
  Transmission Date: 20060501
  Serious: Yes (Other)
  Sender: FDA-Public Use
  Company Number: PHMT2005CA00620

PATIENT
  Sex: Female

DRUGS (2)
  1. VISUDYNE [Suspect]
     Indication: MACULAR DEGENERATION
     Dosage: 15 ML DAILY IV
     Route: 042
     Dates: start: 20051103, end: 20051103
  2. PHENYTOIN [Concomitant]

REACTIONS (1)
  - HALLUCINATION [None]
